FAERS Safety Report 11740862 (Version 1)
Quarter: 2015Q4

REPORT INFORMATION
  Report Type: Report from Study
  Country: GR (occurrence: GR)
  Receive Date: 20151115
  Receipt Date: 20151115
  Transmission Date: 20160304
  Serious: Yes (Death, Hospitalization, Other)
  Sender: FDA-Public Use
  Company Number: GR-BRISTOL-MYERS SQUIBB COMPANY-BMS-2015-076086

PATIENT
  Age: 72 Year
  Sex: Male
  Weight: 65 kg

DRUGS (4)
  1. CEFTRIAXONE. [Concomitant]
     Active Substance: CEFTRIAXONE
     Indication: PRODUCT USED FOR UNKNOWN INDICATION
     Dosage: 2 G, UNK
     Route: 042
     Dates: start: 20151027
  2. NIVOLUMAB [Suspect]
     Active Substance: NIVOLUMAB
     Indication: NON-SMALL CELL LUNG CANCER
     Dosage: 195 MG, UNK
     Route: 042
     Dates: start: 20150925, end: 20150925
  3. NIVOLUMAB [Suspect]
     Active Substance: NIVOLUMAB
     Dosage: 195 MG, UNK
     Route: 042
     Dates: start: 20151009, end: 20151009
  4. NIVOLUMAB [Suspect]
     Active Substance: NIVOLUMAB
     Dosage: 195 MG, UNK
     Route: 042
     Dates: start: 20151023, end: 20151023

REACTIONS (2)
  - Urinary tract infection [Fatal]
  - Acute respiratory failure [Fatal]

NARRATIVE: CASE EVENT DATE: 20151027
